FAERS Safety Report 26048748 (Version 1)
Quarter: 2025Q4

REPORT INFORMATION
  Report Type: Spontaneous
  Country: EU (occurrence: EU)
  Receive Date: 20251115
  Receipt Date: 20251115
  Transmission Date: 20260117
  Serious: Yes (Death, Other)
  Sender: CELLTRION
  Company Number: None

PATIENT

DRUGS (4)
  1. RITUXIMAB [Suspect]
     Active Substance: RITUXIMAB
     Indication: High grade B-cell lymphoma Burkitt-like lymphoma
     Dosage: 375 MG/M2
     Route: 042
     Dates: start: 20251010, end: 20251010
  2. IFOSFAMIDE [Suspect]
     Active Substance: IFOSFAMIDE
     Indication: High grade B-cell lymphoma Burkitt-like lymphoma
     Dosage: 6600 MG
     Route: 042
     Dates: start: 20251010, end: 20251010
  3. CARBOPLATIN [Suspect]
     Active Substance: CARBOPLATIN
     Indication: High grade B-cell lymphoma Burkitt-like lymphoma
     Dosage: 590 MG
     Route: 042
     Dates: start: 20251010, end: 20251010
  4. ETOPOSIDE [Suspect]
     Active Substance: ETOPOSIDE
     Indication: High grade B-cell lymphoma Burkitt-like lymphoma
     Dosage: 188 MG
     Route: 042
     Dates: start: 20251010, end: 20251010

REACTIONS (5)
  - Multiple organ dysfunction syndrome [Fatal]
  - Febrile bone marrow aplasia [Fatal]
  - Sepsis [Fatal]
  - Tumour lysis syndrome [Fatal]
  - Intentional product use issue [Unknown]

NARRATIVE: CASE EVENT DATE: 20251015
